FAERS Safety Report 6409242-7 (Version None)
Quarter: 2009Q4

REPORT INFORMATION
  Report Type: 
  Country: None (occurrence: None)
  Receive Date: 20091019
  Receipt Date: 20091019
  Transmission Date: 20100525
  Serious: Yes (Other)
  Sender: FDA-Public Use
  Company Number: None

PATIENT
  Age: 24 Year
  Sex: Female
  Weight: 48.0813 kg

DRUGS (2)
  1. HUMIRA [Suspect]
     Indication: CROHN'S DISEASE
     Dosage: 40MG BIWEEKLY IV
     Route: 042
     Dates: start: 20080828, end: 20090221
  2. REMICADE [Suspect]
     Indication: CROHN'S DISEASE
     Dosage: N/A EVERY 3-4 WKS IV
     Route: 042
     Dates: start: 20020909, end: 20021129

REACTIONS (5)
  - ABASIA [None]
  - BONE PAIN [None]
  - MYALGIA [None]
  - NEURALGIA [None]
  - SYSTEMIC LUPUS ERYTHEMATOSUS [None]
